FAERS Safety Report 9408913 (Version 1)
Quarter: 2013Q3

REPORT INFORMATION
  Report Type: Spontaneous
  Country: US (occurrence: US)
  Receive Date: 20130719
  Receipt Date: 20130719
  Transmission Date: 20140515
  Serious: No
  Sender: FDA-Public Use
  Company Number: US-009507513-1307USA009038

PATIENT
  Sex: Female

DRUGS (2)
  1. ESTRIOL [Suspect]
     Route: 067
  2. PREMARIN [Concomitant]

REACTIONS (2)
  - Discomfort [Unknown]
  - Irritability [Unknown]
